FAERS Safety Report 16740123 (Version 1)
Quarter: 2019Q4

REPORT INFORMATION
  Report Type: Spontaneous
  Country: US (occurrence: US)
  Receive Date: 20190823
  Receipt Date: 20190823
  Transmission Date: 20200122
  Serious: Yes (Other)
  Sender: FDA-Public Use
  Company Number: None

PATIENT
  Age: 76 Year
  Sex: Female

DRUGS (4)
  1. VITAMIN D2 50,000 IU SOFTGELS [Concomitant]
     Dates: start: 20190206
  2. AMLODIPINE [Suspect]
     Active Substance: AMLODIPINE BESYLATE
     Indication: HYPERTENSION
     Route: 048
     Dates: start: 20190821
  3. ATORVASTATIN 40MG TABLETS [Concomitant]
     Dates: start: 20180126
  4. OMEPRAZOLE 20MG CAPSULES [Concomitant]
     Dates: start: 20190206

REACTIONS (3)
  - Weight decreased [None]
  - Decreased appetite [None]
  - Taste disorder [None]

NARRATIVE: CASE EVENT DATE: 20190821
